FAERS Safety Report 5799268 (Version 3)
Quarter: 2013Q1

REPORT INFORMATION
  Report Type: Spontaneous
  Country: US (occurrence: US)
  Receive Date: 20050519
  Receipt Date: 20130321
  Transmission Date: 20140127
  Serious: Yes (Hospitalization, Disabling)
  Sender: FDA-Public Use
  Company Number: US-JNJFOC-20050503564

PATIENT
  Age: 69 Year
  Sex: Female
  Weight: 66.23 kg

DRUGS (8)
  1. IBUPROFEN [Suspect]
     Indication: OSTEOARTHRITIS
     Dates: start: 20030731, end: 20030825
  2. ACETAMINOPHEN [Suspect]
     Route: 048
  3. ACETAMINOPHEN [Suspect]
     Indication: ARTHRALGIA
     Route: 048
     Dates: start: 20030803, end: 20030825
  4. HYDRODIURIL [Concomitant]
     Dates: start: 200211
  5. XENADRINE RFA-1 [Concomitant]
     Dates: start: 20030721
  6. ZOCOR [Concomitant]
     Dates: start: 200211
  7. ATENOLOL [Concomitant]
     Dates: start: 199812
  8. CALCIUM [Concomitant]
     Dates: start: 200304

REACTIONS (1)
  - Deep vein thrombosis [Recovered/Resolved]
